FAERS Safety Report 10044230 (Version 5)
Quarter: 2014Q3

REPORT INFORMATION
  Report Type: Report from Study
  Country: FR (occurrence: FR)
  Receive Date: 20140328
  Receipt Date: 20140725
  Transmission Date: 20150326
  Serious: Yes (Death, Hospitalization)
  Sender: FDA-Public Use
  Company Number: FR-ROCHE-1369849

PATIENT
  Age: 83 Year
  Sex: Female
  Weight: 66 kg

DRUGS (24)
  1. INEXIUM [Concomitant]
     Active Substance: ESOMEPRAZOLE
     Dosage: 40MG
     Route: 065
     Dates: start: 20140227
  2. ZOPHREN [Concomitant]
     Active Substance: ONDANSETRON
     Route: 065
     Dates: start: 20140227
  3. SIMVASTATINE [Concomitant]
     Active Substance: SIMVASTATIN
     Route: 048
  4. ZELBORAF [Suspect]
     Active Substance: VEMURAFENIB
     Indication: METASTATIC MALIGNANT MELANOMA
     Dosage: 240MG
     Route: 048
     Dates: start: 20140214, end: 20140307
  5. INEGY [Concomitant]
     Active Substance: EZETIMIBE\SIMVASTATIN
     Dosage: 10MG/20MG TABS 30
     Route: 065
  6. HYPERIUM [Concomitant]
     Active Substance: RILMENIDINE PHOSPHATE
     Dosage: 1MG TABS 30
     Route: 048
     Dates: start: 20131209, end: 20140305
  7. CONTRAMAL [Concomitant]
     Active Substance: TRAMADOL HYDROCHLORIDE
     Dosage: 50MG CAPSULE 30
     Route: 065
     Dates: start: 20131209
  8. SKENAN [Concomitant]
     Active Substance: MORPHINE SULFATE
     Route: 065
     Dates: start: 20140224
  9. ACTISKENAN [Concomitant]
     Active Substance: MORPHINE SULFATE
     Route: 065
     Dates: start: 20140224
  10. DEXERYL (FRANCE) [Concomitant]
     Active Substance: GLYCERIN\PARAFFIN
     Route: 065
     Dates: start: 20140227
  11. FOSAMAX [Concomitant]
     Active Substance: ALENDRONATE SODIUM
     Dosage: 10MG TABS 28
     Route: 065
     Dates: start: 20131209
  12. PRIMPERAN [Concomitant]
     Active Substance: METOCLOPRAMIDE HYDROCHLORIDE
     Route: 065
     Dates: start: 20140227
  13. LANTUS [Concomitant]
     Active Substance: INSULIN GLARGINE
     Dosage: 100U/ML CART OPTILIK 3ML5
     Route: 058
     Dates: start: 20131209
  14. COVERSYL [Concomitant]
     Active Substance: PERINDOPRIL
     Dosage: 5MG SCORED TABS 30
     Route: 048
     Dates: start: 20131209
  15. EUPANTOL [Concomitant]
     Active Substance: PANTOPRAZOLE SODIUM
     Dosage: 20MG
     Route: 048
     Dates: start: 20140312
  16. EZETROL [Concomitant]
     Active Substance: EZETIMIBE
     Dosage: 10MG
     Route: 048
     Dates: end: 20140305
  17. ZELBORAF [Suspect]
     Active Substance: VEMURAFENIB
     Route: 048
  18. CACIT VITAMINE D3 [Concomitant]
     Active Substance: CALCIUM CARBONATE\CHOLECALCIFEROL
     Dosage: 1G/880UI SACHET EFFERVECENT 90
     Route: 065
     Dates: start: 20131209
  19. GLUCOPHAGE [Concomitant]
     Active Substance: METFORMIN HYDROCHLORIDE
     Dosage: 1000MG TABS 30
     Route: 048
     Dates: start: 20131209, end: 20140305
  20. CALDINE (FRANCE) [Concomitant]
     Dosage: 4MG SCORED TABS 30
     Route: 065
     Dates: start: 20131209
  21. PRIMPERAN [Concomitant]
     Active Substance: METOCLOPRAMIDE HYDROCHLORIDE
     Dosage: 10 MG
     Route: 048
     Dates: start: 20140312
  22. KARDEGIC [Concomitant]
     Active Substance: ASPIRIN LYSINE
     Dosage: 75MG SACHET 30
     Route: 048
     Dates: start: 20131209, end: 20140228
  23. TEMERIT [Concomitant]
     Active Substance: NEBIVOLOL
     Dosage: 5MG SCORED TABS 90
     Route: 065
     Dates: start: 20131209
  24. DAFALGAN [Concomitant]
     Active Substance: ACETAMINOPHEN
     Dosage: 500MG
     Route: 065
     Dates: start: 20140312

REACTIONS (8)
  - Hepatitis [Recovering/Resolving]
  - Dehydration [Recovering/Resolving]
  - Mouth ulceration [Recovering/Resolving]
  - Nausea [Recovering/Resolving]
  - Diarrhoea [Recovering/Resolving]
  - Vomiting [Recovering/Resolving]
  - Disease progression [Fatal]
  - Fatigue [Recovering/Resolving]

NARRATIVE: CASE EVENT DATE: 20140219
